FAERS Safety Report 8285622-2 (Version None)
Quarter: 2012Q2

REPORT INFORMATION
  Report Type: 
  Country: None (occurrence: None)
  Receive Date: 20120413
  Receipt Date: 20120111
  Transmission Date: 20120825
  Serious: No
  Sender: FDA-Public Use
  Company Number: US-ASTRAZENECA-2011SE75049

PATIENT
  Age: 82 Year
  Sex: Female

DRUGS (7)
  1. THYROID PILL [Concomitant]
     Indication: THYROID DISORDER
  2. KAPIDEX [Concomitant]
  3. CHOLESTEROL PILL [Concomitant]
     Indication: BLOOD CHOLESTEROL ABNORMAL
  4. NEXIUM [Suspect]
     Route: 048
     Dates: start: 20111111
  5. BLOOD PRESSURE PILL [Concomitant]
     Indication: BLOOD PRESSURE ABNORMAL
  6. CRESTOR [Suspect]
     Route: 048
  7. NEXIUM [Suspect]
     Indication: HYPERCHLORHYDRIA
     Route: 048

REACTIONS (2)
  - DRUG PRESCRIBING ERROR [None]
  - BARRETT'S OESOPHAGUS [None]
